FAERS Safety Report 8491188-4 (Version None)
Quarter: 2012Q3

REPORT INFORMATION
  Report Type: 
  Country: None (occurrence: None)
  Receive Date: 20120706
  Receipt Date: 20120626
  Transmission Date: 20120928
  Serious: Yes (Hospitalization)
  Sender: FDA-Public Use
  Company Number: CA-JNJFOC-20120613341

PATIENT
  Sex: Female
  Weight: 82.7 kg

DRUGS (4)
  1. CALCIUM [Concomitant]
     Route: 065
  2. REMICADE [Suspect]
     Indication: CROHN'S DISEASE
     Route: 042
     Dates: start: 20080101
  3. ASCORBIC ACID [Concomitant]
     Route: 065
  4. VITAMIN D [Concomitant]
     Route: 065

REACTIONS (5)
  - NAUSEA [None]
  - DIARRHOEA [None]
  - ABDOMINAL PAIN [None]
  - VOMITING [None]
  - RECTAL HAEMORRHAGE [None]
